FAERS Safety Report 6297804-X (Version None)
Quarter: 2009Q3

REPORT INFORMATION
  Report Type: 
  Country: None (occurrence: None)
  Receive Date: 20090804
  Receipt Date: 20090804
  Transmission Date: 20100115
  Serious: Yes (Other)
  Sender: FDA-Public Use
  Company Number: None

PATIENT
  Age: 62 Year
  Sex: Male
  Weight: 99.7913 kg

DRUGS (1)
  1. LEVITRA [Suspect]
     Indication: ERECTILE DYSFUNCTION
     Dosage: ONE TABLET PO
     Route: 048
     Dates: start: 20090730, end: 20090730

REACTIONS (4)
  - BACK PAIN [None]
  - MIDDLE INSOMNIA [None]
  - MUSCULOSKELETAL PAIN [None]
  - NECK PAIN [None]
